FAERS Safety Report 6655375-X (Version None)
Quarter: 2010Q1

REPORT INFORMATION
  Report Type: 
  Country: None (occurrence: None)
  Receive Date: 20100326
  Receipt Date: 20100326
  Transmission Date: 20100710
  Serious: Yes (Other)
  Sender: FDA-Public Use
  Company Number: None

PATIENT
  Age: 6 Year
  Sex: Female
  Weight: 20.4119 kg

DRUGS (1)
  1. CEFDINIR [Suspect]
     Indication: STREPTOCOCCAL INFECTION
     Dosage: 125/250MG /5ML DAILY PO
     Route: 048
     Dates: start: 20100320, end: 20100324

REACTIONS (1)
  - CONDITION AGGRAVATED [None]
